FAERS Safety Report 22000096 (Version 2)
Quarter: 2023Q1

REPORT INFORMATION
  Report Type: Spontaneous
  Country: GR (occurrence: GR)
  Receive Date: 20230216
  Receipt Date: 20230329
  Transmission Date: 20230418
  Serious: No
  Sender: FDA-Public Use
  Company Number: GR-PFIZER INC-PV202300023634

PATIENT
  Age: 14 Year
  Sex: Male

DRUGS (1)
  1. GENOTROPIN [Suspect]
     Active Substance: SOMATROPIN
     Indication: Dwarfism
     Dosage: 8.5 MG, WEEKLY (6 DAYS, 1 DAY OFF)
     Route: 058
     Dates: start: 202011

REACTIONS (3)
  - Drug dose omission by device [Unknown]
  - Device mechanical issue [Unknown]
  - Device leakage [Unknown]

NARRATIVE: CASE EVENT DATE: 20230205
